FAERS Safety Report 5854398-8 (Version None)
Quarter: 2008Q3

REPORT INFORMATION
  Report Type: 
  Country: None (occurrence: None)
  Receive Date: 20080822
  Receipt Date: 20080814
  Transmission Date: 20090109
  Serious: No
  Sender: FDA-Public Use
  Company Number: US-BOEHRINGER INGELHEIM GMBH, GERMANY-2007-BP-21437BP

PATIENT
  Age: 87 Year
  Sex: Male

DRUGS (11)
  1. FLOMAX [Suspect]
     Indication: DYSURIA
     Route: 048
     Dates: start: 20070601
  2. FLOMAX [Suspect]
     Route: 048
  3. PLAVIX [Concomitant]
     Indication: CORONARY ARTERY BYPASS
  4. ASPIRIN [Concomitant]
     Indication: CORONARY ARTERY BYPASS
  5. FOSAMAX [Concomitant]
     Indication: OSTEOPOROSIS
  6. FUROSEMIDE [Concomitant]
     Indication: OEDEMA
  7. ZAROXOLYN [Concomitant]
     Indication: OEDEMA
  8. POTASSIUM CHLORIDE [Concomitant]
     Indication: OEDEMA
  9. SIMVASTATIN [Concomitant]
     Indication: BLOOD CHOLESTEROL INCREASED
  10. NIASPAN [Concomitant]
     Indication: BLOOD CHOLESTEROL INCREASED
  11. IMDUR [Concomitant]
     Indication: CORONARY ARTERY BYPASS

REACTIONS (3)
  - DRUG INEFFECTIVE [None]
  - MIDDLE INSOMNIA [None]
  - URINE FLOW DECREASED [None]
